FAERS Safety Report 7367336-6 (Version None)
Quarter: 2011Q1

REPORT INFORMATION
  Report Type: 
  Country: None (occurrence: None)
  Receive Date: 20110321
  Receipt Date: 20110321
  Transmission Date: 20110831
  Serious: Yes (Disabling)
  Sender: FDA-Public Use
  Company Number: None

PATIENT
  Age: 46 Year
  Sex: Male
  Weight: 88.4514 kg

DRUGS (1)
  1. TRIAD ALCOHOL PREP PAD [Suspect]
     Dosage: 1/PER AS NEEDED
     Dates: start: 20100108

REACTIONS (3)
  - SCAR [None]
  - INFECTION [None]
  - PRODUCT QUALITY ISSUE [None]
